FAERS Safety Report 4402020-X (Version None)
Quarter: 2004Q3

REPORT INFORMATION
  Report Type: 
  Country: None (occurrence: None)
  Receive Date: 20040714
  Receipt Date: 20040701
  Transmission Date: 20050211
  Serious: Yes (Hospitalization)
  Sender: FDA-Public Use
  Company Number: US-JNJFOC-20040701242

PATIENT
  Age: 41 Year
  Sex: Male

DRUGS (17)
  1. DURAGESIC [Suspect]
     Indication: PAIN
     Dosage: 100 UG/HR, 1 IN 72 HOUR, TRANSDERMAL
     Route: 062
     Dates: start: 20021001
  2. ASACOL (TABLETS) MESALAZINE [Concomitant]
  3. URSO [Concomitant]
  4. NEXIUM [Concomitant]
  5. MERCAPTOPURINE [Concomitant]
  6. NEURONTIN (GABAPENTIN) TABLETS [Concomitant]
  7. BEXTRA (BUCINDOLOL HYDROCHLORIDE) TABLETS [Concomitant]
  8. PREDNISONE [Concomitant]
  9. SONATA (ZALEPLON) TABLETS [Concomitant]
  10. HYDROXYZINE (HYDROXYZINE) TABLETS [Concomitant]
  11. AMITRIPTYLINE (AMITRIPTYLINE) TABLETS [Concomitant]
  12. SPIRONOLACTONE [Concomitant]
  13. LIDODERM (LIDOCAINE) PATCH [Concomitant]
  14. OXYCODONE (OXYCODONE) TABLETS [Concomitant]
  15. CLOTRIMAZOLE-BETAMETHASONE  (LOTRISONE) [Concomitant]
  16. CLOBETASOL PROPIONATE    (CLOBETASOL PROPIONATE) [Concomitant]
  17. AUGMENTIN [Concomitant]

REACTIONS (7)
  - APPLICATION SITE DERMATITIS [None]
  - PAIN [None]
  - PLEURAL EFFUSION [None]
  - PNEUMONIA [None]
  - RASH ERYTHEMATOUS [None]
  - RASH PRURITIC [None]
  - RIB FRACTURE [None]
